FAERS Safety Report 20954456 (Version 1)
Quarter: 2022Q2

REPORT INFORMATION
  Report Type: Spontaneous
  Country: AT (occurrence: AT)
  Receive Date: 20220614
  Receipt Date: 20220614
  Transmission Date: 20220721
  Serious: Yes (Death)
  Sender: FDA-Public Use
  Company Number: AT-SERVIER-S21013844

PATIENT
  Age: 65 Year
  Sex: Female

DRUGS (5)
  1. ONIVYDE [Suspect]
     Active Substance: IRINOTECAN HYDROCHLORIDE
     Indication: Cholangiocarcinoma
     Dosage: 80% (NOT SPECIFIED), EVERY 2 WEEKS, CYCLE 1
     Route: 042
     Dates: start: 20211206, end: 20211206
  2. ONIVYDE [Suspect]
     Active Substance: IRINOTECAN HYDROCHLORIDE
     Indication: Off label use
     Dosage: 85% (NOT SPECIFIED), EVERY 2 WEEKS, CYCLES 2-5
     Route: 042
     Dates: start: 202112, end: 2022
  3. LEUCOVORIN [Suspect]
     Active Substance: LEUCOVORIN
     Indication: Cholangiocarcinoma
     Dosage: UNK, EVERY 2 WEEKS, CYCLES 1-5
     Route: 042
     Dates: start: 20211206, end: 2022
  4. FLUOROURACIL [Concomitant]
     Active Substance: FLUOROURACIL
     Indication: Cholangiocarcinoma
     Dosage: 80% (NOT SPECIFIED), EVERY 2 WEEKS, CYCLE 1
     Route: 042
     Dates: start: 20211206, end: 20211206
  5. FLUOROURACIL [Concomitant]
     Active Substance: FLUOROURACIL
     Dosage: 85% (NOT SPECIFIED), EVERY 2 WEEKS, CYCLES 2-5
     Route: 042
     Dates: start: 202112, end: 2022

REACTIONS (6)
  - Death [Fatal]
  - Malignant neoplasm progression [Unknown]
  - Nausea [Recovering/Resolving]
  - Constipation [Recovering/Resolving]
  - Treatment failure [Unknown]
  - Off label use [Unknown]

NARRATIVE: CASE EVENT DATE: 20211201
